FAERS Safety Report 24278459 (Version 1)
Quarter: 2024Q3

REPORT INFORMATION
  Report Type: Spontaneous
  Country: US (occurrence: None)
  Receive Date: 20240830
  Receipt Date: 20240830
  Transmission Date: 20241016
  Serious: No
  Sender: Public
  Company Number: None

PATIENT

DRUGS (10)
  1. AMLODIPINE [Suspect]
     Active Substance: AMLODIPINE BESYLATE
  2. DONEPEZIL HYDROCHLORIDE [Suspect]
     Active Substance: DONEPEZIL HYDROCHLORIDE
  3. GABAPENTIN [Suspect]
     Active Substance: GABAPENTIN
  4. CELECOXIB [Suspect]
     Active Substance: CELECOXIB
  5. HYDROCHLOROTHIAZIDE [Suspect]
     Active Substance: HYDROCHLOROTHIAZIDE
  6. CARVEDILOL [Suspect]
     Active Substance: CARVEDILOL
  7. ROSUVASTATIN [Suspect]
     Active Substance: ROSUVASTATIN\ROSUVASTATIN CALCIUM
  8. ASPIRIN [Concomitant]
     Active Substance: ASPIRIN
  9. LOSARTAN [Concomitant]
     Active Substance: LOSARTAN\LOSARTAN POTASSIUM
  10. LISINOPRIL [Concomitant]
     Active Substance: LISINOPRIL

REACTIONS (14)
  - Hallucination [None]
  - Back pain [None]
  - Neck pain [None]
  - Arthralgia [None]
  - Balance disorder [None]
  - Limb discomfort [None]
  - Arthralgia [None]
  - Hypoaesthesia [None]
  - Gait disturbance [None]
  - Tremor [None]
  - Paraesthesia [None]
  - Hypoaesthesia [None]
  - Constipation [None]
  - Dysstasia [None]
